FAERS Safety Report 21686031 (Version 1)
Quarter: 2022Q4

REPORT INFORMATION
  Report Type: Spontaneous
  Country: FR (occurrence: FR)
  Receive Date: 20221206
  Receipt Date: 20221206
  Transmission Date: 20230113
  Serious: Yes (Hospitalization)
  Sender: FDA-Public Use
  Company Number: None

PATIENT
  Age: 35 Year
  Sex: Female

DRUGS (1)
  1. HUMIRA [Suspect]
     Active Substance: ADALIMUMAB
     Indication: Ankylosing spondylitis
     Dosage: 40 MG, SOLUTION INJECTABLE EN SERINGUE PR?REMPLIE^
     Route: 058
     Dates: start: 2013

REACTIONS (4)
  - Abortion induced [Unknown]
  - Pre-eclampsia [Recovered/Resolved with Sequelae]
  - Pre-eclampsia [Recovered/Resolved with Sequelae]
  - Maternal exposure during pregnancy [Unknown]

NARRATIVE: CASE EVENT DATE: 20201013
